FAERS Safety Report 9445241 (Version 1)
Quarter: 2013Q3

REPORT INFORMATION
  Report Type: Spontaneous
  Country: FR (occurrence: FR)
  Receive Date: 20130807
  Receipt Date: 20130807
  Transmission Date: 20140515
  Serious: Yes (Hospitalization)
  Sender: FDA-Public Use
  Company Number: FR-GLAXOSMITHKLINE-B0912458A

PATIENT
  Age: 52 Year
  Sex: Male

DRUGS (2)
  1. LAMICTAL [Suspect]
     Indication: CONVULSION
     Route: 048
     Dates: start: 20130202, end: 20130217
  2. DEPAKINE [Concomitant]
     Indication: CONVULSION
     Route: 065
     Dates: end: 201301

REACTIONS (4)
  - Erythema [Unknown]
  - Blister [Recovered/Resolved]
  - Somnolence [Recovered/Resolved]
  - General physical health deterioration [Unknown]
